FAERS Safety Report 8933942 (Version 3)
Quarter: 2012Q4

REPORT INFORMATION
  Report Type: 
  Country: GB (occurrence: GB)
  Receive Date: 20121129
  Receipt Date: 20121221
  Transmission Date: 20130627
  Serious: Yes (Hospitalization, Other)
  Sender: FDA-Public Use
  Company Number: GB-UCBSA-071846

PATIENT
  Age: 39 Year
  Sex: Female

DRUGS (5)
  1. VIMPAT [Suspect]
     Indication: EPILEPSY
     Dates: start: 2012, end: 201210
  2. VIMPAT [Suspect]
     Indication: EPILEPSY
     Dates: start: 201208, end: 2012
  3. VIMPAT [Suspect]
     Indication: EPILEPSY
     Dates: start: 20120716, end: 2012
  4. KEPPRA [Concomitant]
  5. SODIUM VALPROATE [Concomitant]
     Route: 048
     Dates: start: 201108, end: 201208

REACTIONS (7)
  - Confusional state [Recovered/Resolved]
  - Asthenia [Recovering/Resolving]
  - Vomiting [Recovering/Resolving]
  - Electroencephalogram abnormal [Recovered/Resolved]
  - Dysarthria [Recovering/Resolving]
  - Nausea [Recovering/Resolving]
  - Treatment noncompliance [Unknown]
